FAERS Safety Report 23996327 (Version 3)
Quarter: 2024Q3

REPORT INFORMATION
  Report Type: Report from Study
  Country: CN (occurrence: CN)
  Receive Date: 20240620
  Receipt Date: 20240812
  Transmission Date: 20241016
  Serious: Yes (Other)
  Sender: PFIZER
  Company Number: CN-PFIZER INC-202400192313

PATIENT

DRUGS (4)
  1. GELATIN [Suspect]
     Active Substance: GELATIN
     Indication: Therapeutic embolisation
     Dosage: UNK
  2. EPIRUBICIN HYDROCHLORIDE [Suspect]
     Active Substance: EPIRUBICIN HYDROCHLORIDE
     Indication: Therapeutic embolisation
     Dosage: 40 TO 80MG
  3. 10-HYDROXYCAMPTOTHECIN [Suspect]
     Active Substance: 10-HYDROXYCAMPTOTHECIN
     Indication: Therapeutic embolisation
     Dosage: 10 TO 20 MG
  4. IODIZED OIL [Suspect]
     Active Substance: IODIZED OIL
     Indication: Therapeutic embolisation
     Dosage: 10-20 ML

REACTIONS (3)
  - Off label use [Unknown]
  - Device use issue [Unknown]
  - Post embolisation syndrome [Unknown]
